FAERS Safety Report 19846064 (Version 1)
Quarter: 2021Q3

REPORT INFORMATION
  Report Type: Spontaneous
  Country: CA (occurrence: CA)
  Receive Date: 20210917
  Receipt Date: 20210917
  Transmission Date: 20211014
  Serious: Yes (Life-Threatening, Other)
  Sender: FDA-Public Use
  Company Number: CA-SA-2021SA305743

PATIENT
  Age: 47 Year
  Sex: Female

DRUGS (3)
  1. CLARITHROMYCIN. [Concomitant]
     Active Substance: CLARITHROMYCIN
     Indication: SINUSITIS
  2. RIFAMPICIN [Suspect]
     Active Substance: RIFAMPIN
     Indication: SINUSITIS
     Dosage: 400 MG, QD
     Route: 048
  3. CEFIXIME. [Suspect]
     Active Substance: CEFIXIME
     Indication: SINUSITIS
     Dosage: 400 MG, QD
     Route: 048

REACTIONS (13)
  - Drug reaction with eosinophilia and systemic symptoms [Unknown]
  - Alanine aminotransferase increased [Unknown]
  - Hepatic failure [Unknown]
  - Hyponatraemia [Unknown]
  - Lymphocyte count decreased [Unknown]
  - Cough [Unknown]
  - Aspartate aminotransferase increased [Unknown]
  - Blood bilirubin increased [Unknown]
  - Dyspnoea [Unknown]
  - Face oedema [Unknown]
  - Pyrexia [Unknown]
  - Rash [Unknown]
  - Eosinophil count increased [Unknown]
